FAERS Safety Report 24678345 (Version 2)
Quarter: 2024Q4

REPORT INFORMATION
  Report Type: Spontaneous
  Country: FR (occurrence: FR)
  Receive Date: 20241129
  Receipt Date: 20241202
  Transmission Date: 20250114
  Serious: Yes (Hospitalization)
  Sender: ORGANON
  Company Number: None

PATIENT
  Age: 18 Year
  Sex: Female

DRUGS (9)
  1. MIRTAZAPINE [Suspect]
     Active Substance: MIRTAZAPINE
     Dosage: UNK
     Route: 065
  2. CANNABIS SATIVA SUBSP. INDICA TOP [Suspect]
     Active Substance: CANNABIS SATIVA SUBSP. INDICA TOP
     Dosage: UNK
  3. KETAMINE [Suspect]
     Active Substance: KETAMINE
     Dosage: UNK (NON MEDICAMENT)
     Route: 065
  4. ALPRAZOLAM [Suspect]
     Active Substance: ALPRAZOLAM
     Dosage: UNK
     Route: 065
  5. CITALOPRAM [Suspect]
     Active Substance: CITALOPRAM
     Dosage: UNK
     Route: 065
  6. DIAZEPAM [Suspect]
     Active Substance: DIAZEPAM
     Dosage: UNK
     Route: 065
  7. RISPERIDONE [Suspect]
     Active Substance: RISPERIDONE
     Dosage: UNK
     Route: 065
  8. METHYLPHENIDATE HYDROCHLORIDE [Suspect]
     Active Substance: METHYLPHENIDATE HYDROCHLORIDE
     Dosage: UNK
     Route: 065
  9. ALCOHOL [Suspect]
     Active Substance: ALCOHOL
     Dosage: UNK
     Route: 048

REACTIONS (7)
  - Drug abuse [Not Recovered/Not Resolved]
  - Educational problem [Not Recovered/Not Resolved]
  - Suicide attempt [Recovered/Resolved]
  - Poisoning deliberate [Recovered/Resolved]
  - Depressed level of consciousness [Recovered/Resolved]
  - Psychomotor hyperactivity [Recovered/Resolved]
  - Intentional product misuse [Not Recovered/Not Resolved]

NARRATIVE: CASE EVENT DATE: 20240401
